FAERS Safety Report 7476389-6 (Version None)
Quarter: 2011Q2

REPORT INFORMATION
  Report Type: 
  Country: None (occurrence: None)
  Receive Date: 20110512
  Receipt Date: 20110507
  Transmission Date: 20111010
  Serious: Yes (Hospitalization)
  Sender: FDA-Public Use
  Company Number: B0718218A

PATIENT
  Sex: Female

DRUGS (3)
  1. TRAZOLAN [Concomitant]
  2. REQUIP [Suspect]
     Dosage: 8MG PER DAY
  3. REQUIP [Concomitant]
     Dosage: 14MG PER DAY

REACTIONS (2)
  - DYSKINESIA [None]
  - ILL-DEFINED DISORDER [None]
